FAERS Safety Report 16469549 (Version 1)
Quarter: 2019Q2

REPORT INFORMATION
  Report Type: Spontaneous
  Country: US (occurrence: US)
  Receive Date: 20190624
  Receipt Date: 20190624
  Transmission Date: 20190711
  Serious: No
  Sender: FDA-Public Use
  Company Number: US-SA-2019SA166734

PATIENT
  Sex: Female

DRUGS (3)
  1. REPLAGAL [Suspect]
     Active Substance: AGALSIDASE ALFA
     Dosage: UNK
     Route: 065
  2. FABRAZYME [Suspect]
     Active Substance: AGALSIDASE BETA
     Indication: FABRY^S DISEASE
     Dosage: UNK
     Route: 041
  3. MIGALASTAT. [Concomitant]
     Active Substance: MIGALASTAT
     Dosage: 123 MG, UNK
     Route: 065

REACTIONS (1)
  - Drug hypersensitivity [Unknown]
